FAERS Safety Report 13031285 (Version 3)
Quarter: 2017Q1

REPORT INFORMATION
  Report Type: Spontaneous
  Country: US (occurrence: US)
  Receive Date: 20161215
  Receipt Date: 20170223
  Transmission Date: 20170428
  Serious: No
  Sender: FDA-Public Use
  Company Number: US-GLAXOSMITHKLINE-US2016184474

PATIENT
  Age: 65 Year
  Sex: Female

DRUGS (2)
  1. ADVAIR DISKUS [Suspect]
     Active Substance: FLUTICASONE PROPIONATE\SALMETEROL XINAFOATE
     Indication: PULMONARY CONGESTION
     Dosage: 1 PUFF(S), BID
     Route: 055
     Dates: start: 20161208, end: 20161209
  2. LOPRESSOR [Concomitant]
     Active Substance: METOPROLOL TARTRATE

REACTIONS (13)
  - Arthralgia [Unknown]
  - Paraesthesia [Not Recovered/Not Resolved]
  - Device use error [Unknown]
  - Erythema [Recovered/Resolved]
  - Anxiety [Unknown]
  - Hypoaesthesia oral [Not Recovered/Not Resolved]
  - Skin warm [Unknown]
  - Paraesthesia oral [Not Recovered/Not Resolved]
  - Wrong technique in product usage process [Unknown]
  - Discomfort [Unknown]
  - Skin burning sensation [Not Recovered/Not Resolved]
  - Drug hypersensitivity [Unknown]
  - Adverse reaction [Unknown]

NARRATIVE: CASE EVENT DATE: 20161208
